FAERS Safety Report 18075518 (Version 2)
Quarter: 2021Q3

REPORT INFORMATION
  Report Type: Spontaneous
  Country: US (occurrence: US)
  Receive Date: 20200727
  Receipt Date: 20210727
  Transmission Date: 20211014
  Serious: No
  Sender: FDA-Public Use
  Company Number: US-ABBVIE-20K-163-3269074-00

PATIENT
  Age: 27 Year
  Sex: Female
  Weight: 58.11 kg

DRUGS (2)
  1. ALBUTEROL. [Concomitant]
     Active Substance: ALBUTEROL
     Indication: ASTHMA
     Dosage: PRN
  2. SYNTHROID [Suspect]
     Active Substance: LEVOTHYROXINE SODIUM
     Indication: HYPOTHYROIDISM
     Route: 048

REACTIONS (11)
  - Headache [Recovered/Resolved]
  - Maternal exposure during pregnancy [Unknown]
  - Twin pregnancy [Unknown]
  - Dizziness [Recovered/Resolved]
  - Hypertension [Recovered/Resolved]
  - Live birth [Unknown]
  - Tunnel vision [Recovered/Resolved]
  - Hypertension [Recovered/Resolved]
  - Hemianaesthesia [Recovered/Resolved]
  - Headache [Recovered/Resolved]
  - Tunnel vision [Recovered/Resolved]

NARRATIVE: CASE EVENT DATE: 20190827
